FAERS Safety Report 17360617 (Version 1)
Quarter: 2020Q1

REPORT INFORMATION
  Report Type: Spontaneous
  Country: US (occurrence: US)
  Receive Date: 20200203
  Receipt Date: 20200203
  Transmission Date: 20200409
  Serious: No
  Sender: FDA-Public Use
  Company Number: US-GRANULES INDIA LIMITED-2079717

PATIENT
  Sex: Female

DRUGS (1)
  1. ACETAMINOPHEN, USP 500 MG RAPID RELEASE GELCAPS [Suspect]
     Active Substance: ACETAMINOPHEN
     Indication: MALAISE
     Route: 065

REACTIONS (2)
  - Product expiration date issue [Unknown]
  - Drug ineffective [Unknown]
